FAERS Safety Report 25795537 (Version 1)
Quarter: 2025Q3

REPORT INFORMATION
  Report Type: Spontaneous
  Country: US (occurrence: None)
  Receive Date: 20250911
  Receipt Date: 20250911
  Transmission Date: 20251020
  Serious: Yes (Death)
  Sender: FDA-CTU
  Company Number: None

PATIENT
  Age: 94 Year
  Sex: Female

DRUGS (14)
  1. REPATHA [Suspect]
     Active Substance: EVOLOCUMAB
     Indication: Hyperlipidaemia
     Dosage: OTHER FREQUENCY : EVERY 2 WEEKSW;?
     Route: 058
  2. HYDROCHLOROTHIAZIDE [Concomitant]
     Active Substance: HYDROCHLOROTHIAZIDE
  3. FERROUS SULFATE [Concomitant]
     Active Substance: FERROUS SULFATE
  4. TYLENOL [Concomitant]
     Active Substance: ACETAMINOPHEN
  5. ATENOLOL [Concomitant]
     Active Substance: ATENOLOL
  6. ALLOPURINOL [Concomitant]
     Active Substance: ALLOPURINOL
  7. CLONIDINE [Concomitant]
     Active Substance: CLONIDINE
  8. GABAPENTIN [Concomitant]
     Active Substance: GABAPENTIN
  9. HUMULIN N [Concomitant]
     Active Substance: INSULIN HUMAN
  10. nitro-dur patches [Concomitant]
  11. OCUVITE [Concomitant]
     Active Substance: VITAMINS
  12. PANTOPRAZOLE [Concomitant]
     Active Substance: PANTOPRAZOLE
  13. VITAMIN B12 [Concomitant]
     Active Substance: CYANOCOBALAMIN
  14. VITAMIN D [Concomitant]
     Active Substance: VITAMIN D NOS

REACTIONS (1)
  - Death [None]
